FAERS Safety Report 7319620-X (Version None)
Quarter: 2011Q1

REPORT INFORMATION
  Report Type: 
  Country: None (occurrence: None)
  Receive Date: 20110228
  Receipt Date: 20100723
  Transmission Date: 20110831
  Serious: No
  Sender: FDA-Public Use
  Company Number: A0865524A

PATIENT
  Age: 13 Year
  Sex: Female
  Weight: 63.2 kg

DRUGS (2)
  1. LAMICTAL [Suspect]
     Indication: MAJOR DEPRESSION
     Dosage: 250MG PER DAY
     Route: 048
  2. CONCERTA [Concomitant]

REACTIONS (3)
  - PARAESTHESIA [None]
  - FORMICATION [None]
  - PANIC REACTION [None]
